FAERS Safety Report 20632965 (Version 1)
Quarter: 2022Q1

REPORT INFORMATION
  Report Type: Report from Study
  Country: FR (occurrence: FR)
  Receive Date: 20220324
  Receipt Date: 20220324
  Transmission Date: 20220423
  Serious: Yes (Hospitalization)
  Sender: FDA-Public Use
  Company Number: None

PATIENT
  Age: 63 Year
  Sex: Male
  Weight: 71 kg

DRUGS (14)
  1. ATGAM [Suspect]
     Active Substance: EQUINE THYMOCYTE IMMUNE GLOBULIN
     Indication: Bone marrow failure
     Dosage: 40 MG/KG, 1X/DAY
     Route: 042
     Dates: start: 20210902, end: 20210908
  2. NEORAL [Suspect]
     Active Substance: CYCLOSPORINE
     Indication: Bone marrow failure
     Dosage: 200 MG EVERY 12 HOURS
     Route: 048
     Dates: start: 20210902, end: 20210908
  3. ACETAMINOPHEN [Concomitant]
     Active Substance: ACETAMINOPHEN
     Indication: Pain
     Dosage: UNK UNK, AS NEEDED
     Route: 042
     Dates: start: 20210826, end: 20210928
  4. POLYETHYLENE GLYCOLS [Concomitant]
     Active Substance: POLYETHYLENE GLYCOLS
     Indication: Constipation
     Dosage: UNK UNK, AS NEEDED
     Route: 048
     Dates: start: 20210831, end: 20210924
  5. NICARDIPINE HYDROCHLORIDE [Concomitant]
     Active Substance: NICARDIPINE HYDROCHLORIDE
     Indication: Hypertension
     Dosage: UNK UNK, AS NEEDED
     Route: 048
     Dates: start: 20210906, end: 20211031
  6. ACUPAN [Concomitant]
     Active Substance: NEFOPAM HYDROCHLORIDE
     Indication: Pain
     Route: 042
     Dates: start: 20210826, end: 20210927
  7. PRIMPERAN [Concomitant]
     Active Substance: METOCLOPRAMIDE HYDROCHLORIDE
     Indication: Nausea
     Route: 042
     Dates: start: 20210826, end: 20210929
  8. TRAMADOL HYDROCHLORIDE [Concomitant]
     Active Substance: TRAMADOL HYDROCHLORIDE
     Indication: Pain
     Dosage: UNK UNK, AS NEEDED
     Route: 042
     Dates: start: 20210826, end: 20210924
  9. CHLORHEXIDINE GLUCONATE [Concomitant]
     Active Substance: CHLORHEXIDINE GLUCONATE
     Indication: Dental disorder prophylaxis
     Dosage: UNK UNK, AS NEEDED
     Route: 002
     Dates: start: 20210831, end: 20210930
  10. POLARAMINE [Concomitant]
     Active Substance: DEXCHLORPHENIRAMINE MALEATE
     Indication: Hypersensitivity
     Dosage: 5 MG EVERY 12 HOURS
     Route: 042
     Dates: start: 20210906, end: 20210909
  11. VALACYCLOVIR [Concomitant]
     Active Substance: VALACYCLOVIR HYDROCHLORIDE
     Indication: Antiviral prophylaxis
     Dosage: 500 MG EVERY 12 HOURS
     Route: 048
     Dates: start: 20210827
  12. JANSSEN COVID-19 VACCINE [Concomitant]
     Active Substance: AD26.COV2.S
     Indication: COVID-19 immunisation
     Dosage: DOSE 1 , SINGLE
     Route: 030
     Dates: start: 20210706, end: 20210706
  13. METHYLPREDNISOLONE HEMISUCCINATE [Concomitant]
     Active Substance: METHYLPREDNISOLONE HEMISUCCINATE
     Indication: Bone marrow failure
     Dosage: 2 MG/KG, 1X/DAY
     Route: 042
     Dates: start: 20210906, end: 20211012
  14. PANTOPRAZOLE SODIUM [Concomitant]
     Active Substance: PANTOPRAZOLE SODIUM
     Indication: Gastrooesophageal reflux disease
     Dosage: 40 MG, 1X/DAY
     Route: 048
     Dates: start: 20210826, end: 20210924

REACTIONS (2)
  - Cholestasis [Recovered/Resolved]
  - Hepatic cytolysis [Recovered/Resolved]

NARRATIVE: CASE EVENT DATE: 20210907
